FAERS Safety Report 10078739 (Version 2)
Quarter: 2014Q2

REPORT INFORMATION
  Report Type: Spontaneous
  Country: DE (occurrence: DE)
  Receive Date: 20140415
  Receipt Date: 20140418
  Transmission Date: 20141212
  Serious: Yes (Other)
  Sender: FDA-Public Use
  Company Number: DE-INCYTE CORPORATION-2014IN000939

PATIENT
  Age: 81 Year
  Sex: Male

DRUGS (2)
  1. JAKAVI [Suspect]
     Indication: MYELOFIBROSIS
     Dosage: 20 MG, BID
     Route: 065
     Dates: start: 2012
  2. JAKAVI [Suspect]
     Dosage: 15 MG, BID
     Route: 065

REACTIONS (6)
  - Herpes zoster [Unknown]
  - Cystitis [Unknown]
  - Urinary tract infection [Unknown]
  - Dyspnoea [Unknown]
  - Rash [Unknown]
  - Night sweats [Recovered/Resolved]
